FAERS Safety Report 13625067 (Version 8)
Quarter: 2019Q1

REPORT INFORMATION
  Report Type: Report from Study
  Country: GB (occurrence: GB)
  Receive Date: 20170608
  Receipt Date: 20190131
  Transmission Date: 20190417
  Serious: Yes (Death, Other)
  Sender: FDA-Public Use
  Company Number: GB-ROCHE-1636545

PATIENT
  Age: 79 Year
  Sex: Male

DRUGS (4)
  1. ESBRIET [Suspect]
     Active Substance: PIRFENIDONE
     Indication: IDIOPATHIC PULMONARY FIBROSIS
     Route: 048
     Dates: start: 20150306
  2. ESBRIET [Suspect]
     Active Substance: PIRFENIDONE
     Dosage: 4 CAPSULES DAILY
     Route: 048
  3. ESBRIET [Suspect]
     Active Substance: PIRFENIDONE
     Route: 048
     Dates: start: 20150422
  4. ESBRIET [Suspect]
     Active Substance: PIRFENIDONE
     Dosage: 6 CAPSULES DAILY
     Route: 048

REACTIONS (14)
  - Gastric disorder [Recovered/Resolved]
  - Productive cough [Recovering/Resolving]
  - Weight decreased [Not Recovered/Not Resolved]
  - Depressed mood [Unknown]
  - Constipation [Recovered/Resolved]
  - Discomfort [Unknown]
  - Death [Fatal]
  - General physical health deterioration [Unknown]
  - Mood altered [Unknown]
  - Dry mouth [Recovered/Resolved]
  - Blood folate decreased [Unknown]
  - Dyspnoea [Not Recovered/Not Resolved]
  - Decubitus ulcer [Unknown]
  - Loss of personal independence in daily activities [Unknown]

NARRATIVE: CASE EVENT DATE: 20150903
